FAERS Safety Report 10087617 (Version 3)
Quarter: 2015Q2

REPORT INFORMATION
  Report Type: Spontaneous
  Country: US (occurrence: US)
  Receive Date: 20140418
  Receipt Date: 20150420
  Transmission Date: 20150821
  Serious: No
  Sender: FDA-Public Use
  Company Number: US-PURDUE-USA-2013-0108311

PATIENT
  Age: 58 Year
  Sex: Male
  Weight: 54.42 kg

DRUGS (3)
  1. OXYCONTIN [Suspect]
     Active Substance: OXYCODONE HYDROCHLORIDE
     Indication: PAIN
  2. OXYCONTIN [Suspect]
     Active Substance: OXYCODONE HYDROCHLORIDE
     Indication: ARTHRALGIA
     Dosage: 30 MG, BID
     Route: 048
     Dates: start: 201309, end: 201311
  3. OXYCODONE HCL IR CAPSULES [Concomitant]
     Active Substance: OXYCODONE HYDROCHLORIDE
     Indication: BREAKTHROUGH PAIN
     Dosage: 15 MG, UNK
     Route: 048

REACTIONS (3)
  - Dizziness [Unknown]
  - Inappropriate schedule of drug administration [Unknown]
  - Road traffic accident [Unknown]

NARRATIVE: CASE EVENT DATE: 20131011
